FAERS Safety Report 9721908 (Version 1)
Quarter: 2013Q4

REPORT INFORMATION
  Report Type: Report from Study
  Country: ES (occurrence: ES)
  Receive Date: 20131202
  Receipt Date: 20131202
  Transmission Date: 20140711
  Serious: Yes (Hospitalization)
  Sender: FDA-Public Use
  Company Number: ES-ROCHE-1307937

PATIENT
  Age: 63 Year
  Sex: Male

DRUGS (10)
  1. MYCOPHENOLATE MOFETIL [Suspect]
     Indication: RENAL TRANSPLANT
     Route: 065
  2. TACROLIMUS [Suspect]
     Indication: RENAL TRANSPLANT
     Route: 065
  3. PREDNISONE [Suspect]
     Indication: RENAL TRANSPLANT
     Route: 065
  4. BASILIXIMAB [Suspect]
     Indication: RENAL TRANSPLANT
     Route: 065
  5. COTRIMOXAZOLE [Concomitant]
     Dosage: 800/160 1 TABLET/48 HOURS
     Route: 065
  6. VITAMIN D3 [Concomitant]
     Route: 065
  7. ROCALTROL [Concomitant]
     Route: 065
  8. AMLODIPINE [Concomitant]
     Route: 065
  9. OMEPRAZOLE [Concomitant]
     Route: 065
  10. DARBEPOETIN ALFA [Concomitant]
     Route: 065

REACTIONS (3)
  - Refractory cytopenia with unilineage dysplasia [Recovered/Resolved]
  - Renal impairment [Recovered/Resolved]
  - Asthenia [Recovered/Resolved]
